FAERS Safety Report 24056732 (Version 6)
Quarter: 2024Q3

REPORT INFORMATION
  Report Type: Report from Study
  Country: US (occurrence: US)
  Receive Date: 20240705
  Receipt Date: 20240930
  Transmission Date: 20241017
  Serious: Yes (Hospitalization)
  Sender: ABBVIE
  Company Number: US-ABBVIE-5826170

PATIENT
  Sex: Female
  Weight: 52.163 kg

DRUGS (5)
  1. HUMIRA [Suspect]
     Active Substance: ADALIMUMAB
     Indication: Crohn^s disease
     Dosage: FORM STRENGTH: 40MG , CITRATE FREE
     Route: 058
     Dates: start: 20221007
  2. MEGESTROL [Concomitant]
     Active Substance: MEGESTROL
     Indication: Appetite disorder
  3. PREDNISONE [Concomitant]
     Active Substance: PREDNISONE
     Indication: Urinary tract infection
  4. LISINOPRIL [Concomitant]
     Active Substance: LISINOPRIL
     Indication: Blood pressure abnormal
  5. SYNTHROID [Concomitant]
     Active Substance: LEVOTHYROXINE SODIUM
     Indication: Product used for unknown indication

REACTIONS (13)
  - Constipation [Recovering/Resolving]
  - Dehydration [Recovering/Resolving]
  - Heart rate decreased [Recovering/Resolving]
  - Urinary tract infection [Recovered/Resolved]
  - Blood sodium decreased [Recovering/Resolving]
  - Pain [Unknown]
  - Dizziness [Recovering/Resolving]
  - Asthenia [Recovering/Resolving]
  - Peripheral swelling [Recovering/Resolving]
  - Dementia [Unknown]
  - Blood cholesterol abnormal [Unknown]
  - Atrial fibrillation [Unknown]
  - Hypophagia [Unknown]

NARRATIVE: CASE EVENT DATE: 20240101
